FAERS Safety Report 14867554 (Version 2)
Quarter: 2018Q3

REPORT INFORMATION
  Report Type: Spontaneous
  Country: BR (occurrence: BR)
  Receive Date: 20180508
  Receipt Date: 20180730
  Transmission Date: 20181010
  Serious: Yes (Life-Threatening, Hospitalization)
  Sender: FDA-Public Use
  Company Number: PHHY2018BR004122

PATIENT
  Sex: Male
  Weight: 103 kg

DRUGS (23)
  1. OLCADIL [Suspect]
     Active Substance: CLOXAZOLAM
     Indication: SLEEP DISORDER
  2. TRAZODONE [Concomitant]
     Active Substance: TRAZODONE HYDROCHLORIDE
     Indication: INSOMNIA
  3. DIAZEPAM. [Concomitant]
     Active Substance: DIAZEPAM
     Indication: PRODUCT USED FOR UNKNOWN INDICATION
     Route: 065
  4. CLOXAZOLAM [Suspect]
     Active Substance: CLOXAZOLAM
     Indication: ANXIETY
     Dosage: 1 MG, QD
     Route: 048
  5. TRAZODONE [Concomitant]
     Active Substance: TRAZODONE HYDROCHLORIDE
     Indication: ANXIETY DISORDER
     Dosage: 1 DF, UNK (AND A HALF A DAY)
     Route: 048
  6. TRAZODONE [Concomitant]
     Active Substance: TRAZODONE HYDROCHLORIDE
     Indication: DEPRESSION
  7. TRAZODONE [Concomitant]
     Active Substance: TRAZODONE HYDROCHLORIDE
     Indication: PANIC DISORDER
  8. OLCADIL [Suspect]
     Active Substance: CLOXAZOLAM
     Indication: PHOBIA
  9. OLCADIL [Suspect]
     Active Substance: CLOXAZOLAM
     Indication: PANIC DISORDER
  10. CLOXAZOLAM [Suspect]
     Active Substance: CLOXAZOLAM
     Indication: SLEEP DISORDER
  11. CLOXAZOLAM [Suspect]
     Active Substance: CLOXAZOLAM
     Indication: PHOBIA
  12. CLONAZEPAM. [Concomitant]
     Active Substance: CLONAZEPAM
     Indication: INSOMNIA
  13. CLOXAZOLAM [Suspect]
     Active Substance: CLOXAZOLAM
     Indication: PANIC DISORDER
  14. ALPRAZOLAM. [Suspect]
     Active Substance: ALPRAZOLAM
     Indication: PRODUCT USED FOR UNKNOWN INDICATION
     Dosage: UNK
     Route: 065
  15. AMITRIPTYLINE [Concomitant]
     Active Substance: AMITRIPTYLINE
     Indication: DEPRESSION
     Dosage: 1 DF, QD
     Route: 065
  16. CLONAZEPAM. [Concomitant]
     Active Substance: CLONAZEPAM
     Indication: PANIC DISORDER
  17. PROMETHAZINE [Concomitant]
     Active Substance: PROMETHAZINE\PROMETHAZINE HYDROCHLORIDE
     Indication: PRODUCT USED FOR UNKNOWN INDICATION
     Route: 065
  18. CLONAZEPAM. [Concomitant]
     Active Substance: CLONAZEPAM
     Indication: DEPRESSION
  19. AMPLICTIL [Concomitant]
     Active Substance: CHLORPROMAZINE HYDROCHLORIDE
     Indication: PRODUCT USED FOR UNKNOWN INDICATION
     Route: 065
  20. HALDOL [Concomitant]
     Active Substance: HALOPERIDOL
     Indication: PRODUCT USED FOR UNKNOWN INDICATION
     Route: 065
  21. OLCADIL [Suspect]
     Active Substance: CLOXAZOLAM
     Indication: ANXIETY
     Dosage: 1 DF, QD
     Route: 048
  22. CLONAZEPAM. [Concomitant]
     Active Substance: CLONAZEPAM
     Indication: ANXIETY DISORDER
     Dosage: 20 DRP, QD
     Route: 048
  23. LUVOX [Concomitant]
     Active Substance: FLUVOXAMINE MALEATE
     Indication: DEPRESSION
     Dosage: 1 DF, QD
     Route: 048

REACTIONS (22)
  - Phobia [Recovering/Resolving]
  - Malaise [Recovering/Resolving]
  - Somnolence [Recovering/Resolving]
  - Feeling abnormal [Recovering/Resolving]
  - Tremor [Recovering/Resolving]
  - Insomnia [Recovering/Resolving]
  - Condition aggravated [Recovering/Resolving]
  - Wrong technique in product usage process [Recovering/Resolving]
  - Tachycardia [Recovering/Resolving]
  - Fear [Recovering/Resolving]
  - Hyperhidrosis [Recovering/Resolving]
  - Panic disorder [Recovering/Resolving]
  - Depersonalisation/derealisation disorder [Recovering/Resolving]
  - General physical health deterioration [Recovering/Resolving]
  - Anxiety [Recovering/Resolving]
  - Drug withdrawal syndrome [Recovering/Resolving]
  - Chills [Recovering/Resolving]
  - Nasopharyngitis [Recovering/Resolving]
  - Headache [Recovering/Resolving]
  - Head discomfort [Recovering/Resolving]
  - Drug dependence [Recovering/Resolving]
  - Thinking abnormal [Recovering/Resolving]
